FAERS Safety Report 5187697-6 (Version None)
Quarter: 2006Q4

REPORT INFORMATION
  Report Type: 
  Country: None (occurrence: None)
  Receive Date: 20061221
  Receipt Date: 20061211
  Transmission Date: 20070319
  Serious: Yes (Other)
  Sender: FDA-Public Use
  Company Number: PHEH2006US15089

PATIENT
  Age: 40 Year
  Sex: Female

DRUGS (6)
  1. TEGRETOL [Suspect]
     Indication: EPILEPSY
     Dosage: 1000 MG, UNK
     Dates: end: 20060220
  2. DEPAKENE [Suspect]
     Dosage: 2000 MG, UNK
     Dates: end: 20060215
  3. LAMICTAL [Suspect]
     Dosage: 25 MG, UNK
     Dates: start: 20060225, end: 20060320
  4. LAMICTAL [Suspect]
     Dates: start: 20060320, end: 20060330
  5. PRENATAL VITAMINS [Concomitant]
     Indication: PREGNANCY
     Dates: start: 20060216, end: 20060330
  6. FOLIC ACID [Concomitant]
     Indication: PREGNANCY
     Dates: start: 20060216, end: 20060330

REACTIONS (2)
  - ABORTION SPONTANEOUS [None]
  - DRUG EXPOSURE DURING PREGNANCY [None]
